FAERS Safety Report 6094353-9 (Version None)
Quarter: 2009Q1

REPORT INFORMATION
  Report Type: 
  Country: None (occurrence: None)
  Receive Date: 20090224
  Receipt Date: 20090213
  Transmission Date: 20090719
  Serious: Yes (Death)
  Sender: FDA-Public Use
  Company Number: 005694

PATIENT

DRUGS (3)
  1. CILOSTAZOL        (CILOSTAZOL) UNKNOWN [Suspect]
     Dosage: 300 MG, DAILY, DOSE, ORAL
     Route: 048
  2. CLOPIDOGREL [Suspect]
     Dosage: 300 MG, DAILY DOSE, ORAL, 75 MG, DAILY DOSE; ORAL
     Route: 048
  3. ASPIRIN [Suspect]
     Dosage: 100 MG, DAILY DOSE, ORAL
     Route: 048

REACTIONS (3)
  - CORONARY REVASCULARISATION [None]
  - MYOCARDIAL INFARCTION [None]
  - THROMBOSIS IN DEVICE [None]
